FAERS Safety Report 9583525 (Version 1)
Quarter: 2013Q4

REPORT INFORMATION
  Report Type: Spontaneous
  Country: US (occurrence: US)
  Receive Date: 20131002
  Receipt Date: 20131002
  Transmission Date: 20140711
  Serious: No
  Sender: FDA-Public Use
  Company Number: US-AMGEN-USASP2013047614

PATIENT
  Age: 63 Year
  Sex: Female
  Weight: 143 kg

DRUGS (19)
  1. ENBREL [Suspect]
     Indication: PRODUCT USED FOR UNKNOWN INDICATION
     Dosage: 50 MG, QWK
     Route: 058
  2. TRAMADOL HCL [Concomitant]
     Dosage: 200 MG, UNK
  3. ALLOPURINOL [Concomitant]
     Dosage: 100 MG, UNK
  4. LEVOTHYROXIN [Concomitant]
     Dosage: 100 MUG, UNK
  5. METOPROLOL [Concomitant]
     Dosage: 25 MG, UNK
  6. DIOVAN [Concomitant]
     Dosage: 160 MG, UNK
  7. MELOXICAM [Concomitant]
     Dosage: 7.5 MG, UNK
  8. MOMETASONE [Concomitant]
     Dosage: 0.1 %, UNK
  9. K-DUR [Concomitant]
     Dosage: 10 MEQ, UNK
  10. ALLEGRA [Concomitant]
     Dosage: 30 MG, UNK
  11. OMEPRAZOLE [Concomitant]
     Dosage: 20 MG, UNK
  12. MONTELUKAST [Concomitant]
     Dosage: 10 MG, UNK
  13. AZELASTINE [Concomitant]
     Dosage: 0.1 %, UNK
  14. IRON [Concomitant]
     Dosage: 18 MG, UNK
  15. MULTIPLE VITAMINS [Concomitant]
     Dosage: UNK
  16. VITAMIN C                          /00008001/ [Concomitant]
     Dosage: 500 MG, TD
  17. VITAMIN E                          /00110501/ [Concomitant]
     Dosage: 200 UNIT, UNK
  18. CALCIUM D                          /00944201/ [Concomitant]
     Dosage: UNK
  19. OSTEO BI-FLEX [Concomitant]

REACTIONS (3)
  - Wheezing [Unknown]
  - Hypersensitivity [Unknown]
  - Bronchitis [Unknown]
